FAERS Safety Report 6991288-1 (Version None)
Quarter: 2010Q3

REPORT INFORMATION
  Report Type: 
  Country: None (occurrence: None)
  Receive Date: 20100916
  Receipt Date: 20081006
  Transmission Date: 20110219
  Serious: No
  Sender: FDA-Public Use
  Company Number: US-WYE-H06275608

PATIENT
  Age: 57 Year
  Sex: Female

DRUGS (1)
  1. PREMARIN [Suspect]
     Indication: HORMONE REPLACEMENT THERAPY
     Route: 048

REACTIONS (5)
  - BREAST TENDERNESS [None]
  - DRUG INEFFECTIVE [None]
  - DRY SKIN [None]
  - EMOTIONAL DISORDER [None]
  - PALPITATIONS [None]
